FAERS Safety Report 9266984 (Version 1)
Quarter: 2013Q2

REPORT INFORMATION
  Report Type: Spontaneous
  Country: US (occurrence: None)
  Receive Date: 20130502
  Receipt Date: 20130502
  Transmission Date: 20140414
  Serious: Yes (Hospitalization)
  Sender: FDA-Public Use
  Company Number: None

PATIENT
  Age: 63 Year
  Sex: Male
  Weight: 102 kg

DRUGS (2)
  1. WARFARIN [Suspect]
     Indication: DEEP VEIN THROMBOSIS
     Dosage: 10 MG  EVERY DAY  PO
     Route: 048
     Dates: start: 20121223, end: 20130404
  2. WARFARIN [Suspect]
     Indication: PULMONARY EMBOLISM
     Dosage: 10 MG  EVERY DAY  PO
     Route: 048
     Dates: start: 20121223, end: 20130404

REACTIONS (2)
  - Gastric haemorrhage [None]
  - Haemarthrosis [None]
